FAERS Safety Report 5402498-9 (Version None)
Quarter: 2007Q3

REPORT INFORMATION
  Report Type: 
  Country: None (occurrence: None)
  Receive Date: 20070801
  Receipt Date: 20061113
  Transmission Date: 20080115
  Serious: Yes (Hospitalization)
  Sender: FDA-Public Use
  Company Number: A0616966A

PATIENT
  Age: 42 Year
  Sex: Male

DRUGS (14)
  1. IMITREX [Suspect]
     Indication: MIGRAINE
     Dosage: 50MG TWICE PER DAY
     Route: 048
  2. IMITREX [Suspect]
     Route: 058
  3. AMBIEN [Concomitant]
  4. PHENERGAN HCL [Concomitant]
  5. PRILOSEC [Concomitant]
  6. PHRENILIN FORTE [Concomitant]
  7. UNSPECIFIED MEDICATION [Concomitant]
  8. GINGER [Concomitant]
  9. COQ-10 [Concomitant]
  10. HERBS [Concomitant]
  11. VALERIAN [Concomitant]
  12. MELATONIN [Concomitant]
  13. DURAGESIC-100 [Concomitant]
  14. OPIUM DROPS [Concomitant]

REACTIONS (2)
  - ANAPHYLACTIC REACTION [None]
  - DIARRHOEA [None]
